FAERS Safety Report 4821406-2 (Version None)
Quarter: 2005Q4

REPORT INFORMATION
  Report Type: 
  Country: None (occurrence: None)
  Receive Date: 20051107
  Receipt Date: 20050824
  Transmission Date: 20060501
  Serious: Yes (Hospitalization)
  Sender: FDA-Public Use
  Company Number: JP-BRISTOL-MYERS SQUIBB COMPANY-13096755

PATIENT
  Age: 59 Year
  Sex: Female

DRUGS (7)
  1. EFAVIRENZ [Suspect]
     Indication: HIV INFECTION
     Route: 048
     Dates: start: 20040713
  2. COMBIVIR [Suspect]
     Indication: HIV INFECTION
     Route: 048
     Dates: start: 20040713, end: 20050630
  3. EPIRIZOLE [Suspect]
     Route: 048
     Dates: start: 20050701
  4. ZITHROMAC [Suspect]
     Route: 048
     Dates: start: 20050701
  5. OMEPRAL [Concomitant]
     Dates: start: 20050419
  6. PREDONINE [Concomitant]
     Dates: start: 20050419
  7. MEPRON [Concomitant]
     Dates: start: 20050701

REACTIONS (2)
  - ANAEMIA [None]
  - CARDIAC FAILURE [None]
